FAERS Safety Report 13353143 (Version 1)
Quarter: 2017Q1

REPORT INFORMATION
  Report Type: Spontaneous
  Country: JP (occurrence: JP)
  Receive Date: 20170321
  Receipt Date: 20170321
  Transmission Date: 20170429
  Serious: Yes (Other)
  Sender: FDA-Public Use
  Company Number: JP-LUPIN PHARMACEUTICALS INC.-2017-00067

PATIENT
  Age: 73 Year
  Sex: Male

DRUGS (1)
  1. VORICONAZOLE. [Suspect]
     Active Substance: VORICONAZOLE
     Indication: BRONCHOPULMONARY ASPERGILLOSIS
     Dosage: 200 MG
     Route: 065

REACTIONS (2)
  - Hypoglycaemia [Unknown]
  - Altered state of consciousness [Recovered/Resolved]
